FAERS Safety Report 21816898 (Version 2)
Quarter: 2023Q1

REPORT INFORMATION
  Report Type: Spontaneous
  Country: US (occurrence: US)
  Receive Date: 20230104
  Receipt Date: 20230118
  Transmission Date: 20230418
  Serious: No
  Sender: FDA-Public Use
  Company Number: US-PFIZER INC-202201402826

PATIENT
  Age: 90 Year
  Sex: Male
  Weight: 77.11 kg

DRUGS (2)
  1. PAXLOVID [Suspect]
     Active Substance: NIRMATRELVIR\RITONAVIR
     Indication: COVID-19 treatment
     Dosage: 1 DOSE IN THE MORNING AND 1 AT NIGHT
     Route: 048
     Dates: start: 20221229, end: 20230102
  2. BEBTELOVIMAB [Concomitant]
     Active Substance: BEBTELOVIMAB
     Dosage: 175 MG
     Dates: start: 20221228

REACTIONS (7)
  - Diarrhoea [Unknown]
  - Productive cough [Unknown]
  - Oropharyngeal pain [Unknown]
  - Nasopharyngitis [Unknown]
  - Upper-airway cough syndrome [Unknown]
  - Disease recurrence [Unknown]
  - COVID-19 [Unknown]

NARRATIVE: CASE EVENT DATE: 20221230
